FAERS Safety Report 22869125 (Version 3)
Quarter: 2023Q4

REPORT INFORMATION
  Report Type: Spontaneous
  Country: US (occurrence: US)
  Receive Date: 20230825
  Receipt Date: 20231130
  Transmission Date: 20240110
  Serious: No
  Sender: FDA-Public Use
  Company Number: US-002147023-NVSC2023US185518

PATIENT
  Sex: Female

DRUGS (1)
  1. PROMACTA [Suspect]
     Active Substance: ELTROMBOPAG OLAMINE
     Indication: Illness
     Dosage: 150 MG, QD
     Route: 048
     Dates: start: 202305

REACTIONS (2)
  - Dry skin [Unknown]
  - Diarrhoea [Unknown]
